FAERS Safety Report 10476933 (Version 2)
Quarter: 2014Q4

REPORT INFORMATION
  Report Type: Spontaneous
  Country: US (occurrence: US)
  Receive Date: 20140926
  Receipt Date: 20141013
  Transmission Date: 20150528
  Serious: Yes (Other)
  Sender: FDA-Public Use
  Company Number: US-BEH-2014045120

PATIENT
  Age: 37 Year
  Sex: Female

DRUGS (7)
  1. ZOLOFT [Concomitant]
     Active Substance: SERTRALINE HYDROCHLORIDE
     Indication: SEIZURE
  2. FLOMAX [Concomitant]
     Active Substance: TAMSULOSIN HYDROCHLORIDE
     Indication: PELVIC FLOOR MUSCLE WEAKNESS
  3. HIZENTRA [Suspect]
     Active Substance: HUMAN IMMUNOGLOBULIN G
     Dosage: ??-JAN-2014
     Route: 058
  4. HIZENTRA [Suspect]
     Active Substance: HUMAN IMMUNOGLOBULIN G
     Dosage: ??-JAN-2014
  5. ZONEGRAN [Concomitant]
     Active Substance: ZONISAMIDE
     Indication: SEIZURE
  6. NORVASC [Concomitant]
     Active Substance: AMLODIPINE BESYLATE
     Indication: HYPERTENSION
  7. HIZENTRA [Suspect]
     Active Substance: HUMAN IMMUNOGLOBULIN G
     Indication: IMMUNODEFICIENCY COMMON VARIABLE
     Dosage: ??-JUN-2014

REACTIONS (1)
  - Generalised tonic-clonic seizure [Not Recovered/Not Resolved]

NARRATIVE: CASE EVENT DATE: 20140601
